FAERS Safety Report 9783660 (Version 2)
Quarter: 2014Q1

REPORT INFORMATION
  Report Type: Spontaneous
  Country: IT (occurrence: IT)
  Receive Date: 20131226
  Receipt Date: 20140225
  Transmission Date: 20141002
  Serious: Yes (Other)
  Sender: FDA-Public Use
  Company Number: IT-TEVA-452223ISR

PATIENT
  Age: 70 Year
  Sex: Female
  Weight: 62 kg

DRUGS (5)
  1. ACTIQ 400 MCG [Suspect]
     Indication: PAIN
     Dosage: 400 MICROGRAM DAILY;
     Route: 060
     Dates: start: 20130924, end: 20131106
  2. OXYCONTIN 40 MG [Suspect]
     Indication: PAIN
     Dosage: 80 MILLIGRAM DAILY;
     Route: 048
     Dates: start: 20131001, end: 20131106
  3. ALMARYTM 100 MG [Concomitant]
     Indication: ARRHYTHMIA
     Dosage: 100 MILLIGRAM DAILY;
     Route: 048
  4. PARIET 20 MG [Concomitant]
     Indication: PROPHYLAXIS AGAINST GASTROINTESTINAL ULCER
     Dosage: 40 MILLIGRAM DAILY;
     Route: 048
     Dates: start: 20130809, end: 20131106
  5. SOLDESAM [Concomitant]
     Indication: PAIN
     Dosage: 64 GTT DAILY;
     Route: 048
     Dates: start: 20130731, end: 20131106

REACTIONS (2)
  - Bradykinesia [Recovering/Resolving]
  - Bradyphrenia [Recovering/Resolving]
